FAERS Safety Report 20405171 (Version 1)
Quarter: 2022Q1

REPORT INFORMATION
  Report Type: Spontaneous
  Country: US (occurrence: None)
  Receive Date: 20220128
  Receipt Date: 20220128
  Transmission Date: 20220423
  Serious: No
  Sender: FDA-Public Use
  Company Number: None

PATIENT
  Age: 34 Year
  Sex: Male

DRUGS (1)
  1. OCREVUS [Suspect]
     Active Substance: OCRELIZUMAB
     Indication: Product used for unknown indication

REACTIONS (6)
  - Feeling abnormal [None]
  - Vision blurred [None]
  - Muscle tightness [None]
  - Muscle spasms [None]
  - Hypoaesthesia [None]
  - Balance disorder [None]

NARRATIVE: CASE EVENT DATE: 20211115
